FAERS Safety Report 21383899 (Version 2)
Quarter: 2023Q1

REPORT INFORMATION
  Report Type: Report from Study
  Country: US (occurrence: US)
  Receive Date: 20220928
  Receipt Date: 20230131
  Transmission Date: 20230418
  Serious: Yes (Hospitalization, Other)
  Sender: FDA-Public Use
  Company Number: US-ABBVIE-4131345

PATIENT
  Sex: Female

DRUGS (4)
  1. VENCLEXTA [Suspect]
     Active Substance: VENETOCLAX
     Indication: Immunodeficiency common variable
     Dosage: FOUR TABLETS WITH FOOD AND WATER AT THE SAME TIME EACH DAY
     Route: 048
  2. VENCLEXTA [Suspect]
     Active Substance: VENETOCLAX
     Indication: Immunodeficiency common variable
     Dosage: THEN, 50MG (1X50MG TAB) DAILY BY MOUTH WEEK 2
  3. VENCLEXTA [Suspect]
     Active Substance: VENETOCLAX
     Indication: Immunodeficiency common variable
     Dosage: 200MG(2X100MG TABS) DAILY WEEK 4
  4. VENCLEXTA [Suspect]
     Active Substance: VENETOCLAX
     Indication: Immunodeficiency common variable
     Dosage: TAKE 20MG(2X10MG TABS) BY MOUTH EVERY DAY ON WEEK 1

REACTIONS (5)
  - Haemoglobin decreased [Unknown]
  - Off label use [Unknown]
  - Recurrent cancer [Unknown]
  - Abdominal discomfort [Unknown]
  - Mental impairment [Unknown]
